FAERS Safety Report 16942892 (Version 2)
Quarter: 2019Q4

REPORT INFORMATION
  Report Type: Spontaneous
  Country: US (occurrence: US)
  Receive Date: 20191021
  Receipt Date: 20191024
  Transmission Date: 20200122
  Serious: Yes (Death, Other)
  Sender: FDA-Public Use
  Company Number: US-JNJFOC-20191015231

PATIENT
  Age: 81 Year
  Sex: Female

DRUGS (1)
  1. IMBRUVICA [Suspect]
     Active Substance: IBRUTINIB
     Indication: CHRONIC LYMPHOCYTIC LEUKAEMIA
     Route: 048
     Dates: start: 2019

REACTIONS (6)
  - Hyperleukocytosis [Fatal]
  - Aspartate aminotransferase increased [Unknown]
  - Leukostasis syndrome [Fatal]
  - Alanine aminotransferase increased [Unknown]
  - Blood creatinine increased [Unknown]
  - Chylothorax [Unknown]
